FAERS Safety Report 4696864-7 (Version None)
Quarter: 2005Q2

REPORT INFORMATION
  Report Type: 
  Country: None (occurrence: None)
  Receive Date: 20050620
  Receipt Date: 20050606
  Transmission Date: 20051028
  Serious: Yes (Life-Threatening)
  Sender: FDA-Public Use
  Company Number: SUS1-2005-00191

PATIENT
  Age: 74 Year
  Sex: Female

DRUGS (10)
  1. PENTASA [Suspect]
     Indication: COLITIS ULCERATIVE
     Dosage: 4G DAILY, ORAL
     Route: 048
     Dates: start: 20050118, end: 20050204
  2. PROPRANOLOL [Concomitant]
  3. FENOFIBRATE [Concomitant]
  4. DIGOXIN [Concomitant]
  5. METOPIMAZINE (METOPIMAZINE) [Concomitant]
  6. FUROSEMIDE [Concomitant]
  7. POTASSIUM CHLORIDE [Concomitant]
  8. PERINDOPRIL (PERINDOPRIL) [Concomitant]
  9. OMEPRAZOLE [Concomitant]
  10. TRIMETAZIDINE HYDROCHLORIDE (TRIMETAZIDINE HYDROCHLORIDE) [Concomitant]

REACTIONS (2)
  - ANGINA PECTORIS [None]
  - ATRIAL FIBRILLATION [None]
